FAERS Safety Report 7262171-1 (Version None)
Quarter: 2011Q1

REPORT INFORMATION
  Report Type: 
  Country: None (occurrence: None)
  Receive Date: 20110130
  Receipt Date: 20101215
  Transmission Date: 20110831
  Serious: No
  Sender: FDA-Public Use
  Company Number: US-ABBOTT-10P-163-0691709-00

PATIENT
  Age: 29 Year
  Sex: Male

DRUGS (11)
  1. LORAZEPAM [Concomitant]
     Indication: ANXIETY
     Dosage: AS REQUIRED
  2. HYDROCO-AP [Concomitant]
     Indication: PAIN
     Dosage: 10/650 MG 1/2 TAB WITH MEALS
  3. LIALDA [Concomitant]
     Indication: ANTIINFLAMMATORY THERAPY
  4. CENTRUM [Concomitant]
     Indication: PRODUCT USED FOR UNKNOWN INDICATION
  5. IBUPROFEN [Concomitant]
     Indication: PRODUCT USED FOR UNKNOWN INDICATION
     Dosage: OCCASIONAL
  6. WELCHOL [Concomitant]
     Indication: DYSPEPSIA
     Dosage: WITH MEALS 1-2 TABS
  7. PREDNISONE [Concomitant]
     Indication: CROHN'S DISEASE
  8. NICOTINE [Concomitant]
     Indication: EX-TOBACCO USER
     Dosage: PATCH
  9. LIALDA [Concomitant]
     Indication: DYSPEPSIA
     Dosage: AT LUNCH
  10. BENO [Concomitant]
     Indication: FLATULENCE
     Dosage: WITH MEALS 1-2 TABS DAILY
  11. HUMIRA [Suspect]
     Indication: PRODUCT USED FOR UNKNOWN INDICATION
     Dosage: INITIAL DOSE
     Dates: start: 20101210

REACTIONS (1)
  - CROHN'S DISEASE [None]
